FAERS Safety Report 7909469 (Version 13)
Quarter: 2016Q3

REPORT INFORMATION
  Report Type: Spontaneous
  Country: US (occurrence: US)
  Receive Date: 20110420
  Receipt Date: 20160802
  Transmission Date: 20161109
  Serious: Yes (Other)
  Sender: FDA-Public Use
  Company Number: US-ASTRAZENECA-2011SE21255

PATIENT
  Age: 49 Year
  Sex: Female
  Weight: 87.1 kg

DRUGS (34)
  1. MOBIC (GEN) [Concomitant]
     Indication: ARTHRITIS
  2. METFORMIN HYDROCHLORIDE. [Concomitant]
     Active Substance: METFORMIN HYDROCHLORIDE
     Indication: DIABETES MELLITUS
  3. PREDNISONE PLUS [Concomitant]
     Indication: ASTHMA
  4. SYMBICORT [Suspect]
     Active Substance: BUDESONIDE\FORMOTEROL FUMARATE DIHYDRATE
     Indication: ASTHMA
     Dosage: 160/4.5 UG TWO PUFFS TWICE DAILY
     Route: 055
  5. SINGULAIR (GENERIC) [Concomitant]
     Indication: ASTHMA
  6. MELOXICAM. [Concomitant]
     Active Substance: MELOXICAM
     Dosage: 15.0MG UNKNOWN
  7. ZOLPIDEM [Concomitant]
     Active Substance: ZOLPIDEM\ZOLPIDEM TARTRATE
     Dosage: 5.0MG UNKNOWN
  8. DIFLUCAN [Concomitant]
     Active Substance: FLUCONAZOLE
     Indication: FUNGAL INFECTION
  9. PREVENTIAL [Concomitant]
     Dosage: INHALER
     Route: 055
  10. MONISTAT [Concomitant]
     Active Substance: MICONAZOLE NITRATE
  11. SYMBICORT [Suspect]
     Active Substance: BUDESONIDE\FORMOTEROL FUMARATE DIHYDRATE
     Indication: CHRONIC OBSTRUCTIVE PULMONARY DISEASE
     Dosage: 160/4.5 UG TWO PUFFS TWICE DAILY
     Route: 055
  12. PULMICORT FLEXHALER [Suspect]
     Active Substance: BUDESONIDE
     Indication: ASTHMA
     Route: 055
  13. ZYRTEC-D ALLERGY AND CONGESTION [Concomitant]
     Active Substance: CETIRIZINE HYDROCHLORIDE\PSEUDOEPHEDRINE HYDROCHLORIDE
     Indication: MULTIPLE ALLERGIES
     Dosage: 12 HOUR DAILY IN THE MORNING
  14. AMBIEN [Concomitant]
     Active Substance: ZOLPIDEM TARTRATE
     Indication: SLEEP DISORDER
  15. ESTER-C [Concomitant]
     Active Substance: CALCIUM\VITAMINS
  16. NASONES [Concomitant]
     Dosage: 2 SPRAYS TWICE A DAY
  17. PULMICORT FLEXHALER [Suspect]
     Active Substance: BUDESONIDE
     Indication: ASTHMA
     Route: 055
  18. PREDNISONE PLUS [Concomitant]
     Indication: MULTIPLE ALLERGIES
  19. ANTIBIOTICS [Concomitant]
     Active Substance: UNSPECIFIED INGREDIENT
  20. VITAMIN D OTC [Concomitant]
  21. PREMARIN [Concomitant]
     Active Substance: ESTROGENS, CONJUGATED
     Indication: FUNGAL INFECTION
  22. PULMICORT FLEXHALER [Suspect]
     Active Substance: BUDESONIDE
     Indication: ASTHMA
     Dosage: 180 MCG 1 PUFF TWICE A DAY
     Route: 055
  23. NATURE-THROID [Concomitant]
     Active Substance: THYROID, PORCINE
     Indication: THYROID DISORDER
     Dosage: 65.0MG AS REQUIRED
  24. NASONEX [Concomitant]
     Active Substance: MOMETASONE FUROATE
     Indication: NASAL DISORDER
  25. LIPITOR [Concomitant]
     Active Substance: ATORVASTATIN CALCIUM
     Dosage: 20.0MG UNKNOWN
  26. LISINOPRIL. [Suspect]
     Active Substance: LISINOPRIL
     Route: 048
  27. PROVENTIL [Concomitant]
     Active Substance: ALBUTEROL
     Indication: ASTHMA
     Dosage: AS REQUIRED
  28. MONTELUKAST [Concomitant]
     Active Substance: MONTELUKAST SODIUM
     Dosage: 10.0MG UNKNOWN
  29. PURBIOTIC [Concomitant]
  30. NATURE-THROID [Concomitant]
     Active Substance: THYROID, PORCINE
     Dosage: 1 TABLET 4 DAYS A WEEK AND 2 TABLETS THREE DAYS A WEEK
  31. SINGULAIR [Concomitant]
     Active Substance: MONTELUKAST SODIUM
  32. NEXIUM [Suspect]
     Active Substance: ESOMEPRAZOLE MAGNESIUM
     Route: 048
  33. DEXILANT DR [Concomitant]
     Indication: GASTROOESOPHAGEAL REFLUX DISEASE
  34. MACRODANTIN [Concomitant]
     Active Substance: NITROFURANTOIN
     Indication: ILL-DEFINED DISORDER
     Dosage: 50.0MG AS REQUIRED

REACTIONS (25)
  - Granuloma annulare [Unknown]
  - Malaise [Unknown]
  - Glucose tolerance impaired [Not Recovered/Not Resolved]
  - Asthma [Unknown]
  - Sinusitis [Unknown]
  - Drug ineffective [Unknown]
  - Neoplasm malignant [Unknown]
  - Insomnia [Unknown]
  - Intentional product misuse [Unknown]
  - Immune system disorder [Unknown]
  - Respiratory disorder [Unknown]
  - Fatigue [Unknown]
  - Fungal infection [Unknown]
  - Nephrolithiasis [Not Recovered/Not Resolved]
  - Pyrexia [Unknown]
  - Sneezing [Unknown]
  - Body height decreased [Not Recovered/Not Resolved]
  - Hypersensitivity [Unknown]
  - Ear infection [Not Recovered/Not Resolved]
  - Urethritis [Unknown]
  - Gingival cancer [Unknown]
  - Respiratory tract infection [Unknown]
  - Nasopharyngitis [Not Recovered/Not Resolved]
  - Drug hypersensitivity [Not Recovered/Not Resolved]
  - Drug dose omission [Unknown]

NARRATIVE: CASE EVENT DATE: 2008
